FAERS Safety Report 9129421 (Version 1)
Quarter: 2013Q1

REPORT INFORMATION
  Report Type: Report from Study
  Country: CA (occurrence: CA)
  Receive Date: 20130125
  Receipt Date: 20130125
  Transmission Date: 20140127
  Serious: Yes (Other)
  Sender: FDA-Public Use
  Company Number: CA-ROCHE-1148799

PATIENT
  Age: 60 Year
  Sex: Female
  Weight: 63.56 kg

DRUGS (5)
  1. RITUXAN [Suspect]
     Indication: RHEUMATOID ARTHRITIS
     Dosage: MOST RECENT DOSE ON 24/JAN/2012
     Route: 042
     Dates: start: 20100203
  2. FOSAVANCE [Concomitant]
  3. PLAQUENIL [Concomitant]
  4. NAPROXEN [Concomitant]
  5. URSODIOL [Concomitant]

REACTIONS (4)
  - Joint effusion [Recovered/Resolved]
  - Arthralgia [Recovered/Resolved]
  - Sinusitis [Not Recovered/Not Resolved]
  - Conjunctivitis [Not Recovered/Not Resolved]
